FAERS Safety Report 5466647-9 (Version None)
Quarter: 2007Q3

REPORT INFORMATION
  Report Type: 
  Country: None (occurrence: None)
  Receive Date: 20070921
  Receipt Date: 20070921
  Transmission Date: 20080115
  Serious: Yes (Hospitalization)
  Sender: FDA-Public Use
  Company Number: None

PATIENT
  Age: 77 Year
  Sex: Male

DRUGS (10)
  1. ACTOS [Suspect]
     Indication: TYPE 2 DIABETES MELLITUS
     Dosage: 50MG DAILY PO
     Route: 048
     Dates: start: 20070530, end: 20070603
  2. LANTUS [Concomitant]
  3. PRANDIN [Concomitant]
  4. TOPROL-XL [Concomitant]
  5. ALTACE [Concomitant]
  6. LASIX [Concomitant]
  7. VYTORIN [Concomitant]
  8. FLOMAX [Concomitant]
  9. PLAVIX [Concomitant]
  10. LYRICA [Concomitant]

REACTIONS (6)
  - BRONCHITIS [None]
  - CARDIAC FAILURE CONGESTIVE [None]
  - CONDITION AGGRAVATED [None]
  - LEG AMPUTATION [None]
  - OEDEMA PERIPHERAL [None]
  - PNEUMONIA [None]
